FAERS Safety Report 6153795-3 (Version None)
Quarter: 2009Q2

REPORT INFORMATION
  Report Type: 
  Country: None (occurrence: None)
  Receive Date: 20090414
  Receipt Date: 20071213
  Transmission Date: 20091009
  Serious: Yes (Hospitalization)
  Sender: FDA-Public Use
  Company Number: US-ASTRAZENECA-2006UW21001

PATIENT
  Age: 15599 Day
  Sex: Female
  Weight: 101.2 kg

DRUGS (20)
  1. SEROQUEL [Suspect]
     Indication: SCHIZOPHRENIA
     Route: 048
     Dates: start: 20030901, end: 20051201
  2. SEROQUEL [Suspect]
     Indication: DEPRESSION
     Route: 048
     Dates: start: 20030901, end: 20051201
  3. SEROQUEL [Suspect]
     Dosage: 25-300 MG
     Route: 048
     Dates: start: 20001101, end: 20010303
  4. SEROQUEL [Suspect]
     Dosage: 25-300 MG
     Route: 048
     Dates: start: 20001101, end: 20010303
  5. HALDOL [Concomitant]
  6. RISPERDAL [Concomitant]
  7. THORAZINE [Concomitant]
  8. LIPITOR [Concomitant]
  9. TENORMIN [Concomitant]
  10. ZOCOR [Concomitant]
  11. ROBITUSSIN [Concomitant]
  12. CELEXA [Concomitant]
  13. ASPIRIN [Concomitant]
  14. METOPROLOL TARTRATE [Concomitant]
  15. LANSOPRAZOLE [Concomitant]
  16. METHYLPREDNISOLONE 4MG TAB [Concomitant]
  17. CIMETIDINE HCL [Concomitant]
  18. ZESTRIL [Concomitant]
  19. BENADRYL [Concomitant]
  20. METFORMIN HCL [Concomitant]

REACTIONS (19)
  - ADJUSTMENT DISORDER [None]
  - ANGIOEDEMA [None]
  - CHEST DISCOMFORT [None]
  - CHRONIC OBSTRUCTIVE PULMONARY DISEASE [None]
  - CLUBBING [None]
  - DIABETES MELLITUS [None]
  - DIZZINESS [None]
  - DYSPHONIA [None]
  - DYSPNOEA EXERTIONAL [None]
  - EPISTAXIS [None]
  - HYPERKALAEMIA [None]
  - HYPERTENSION [None]
  - HYPOXIA [None]
  - MYOPIA [None]
  - OBESITY [None]
  - PAIN IN EXTREMITY [None]
  - PROTEINURIA [None]
  - REFLUX LARYNGITIS [None]
  - SCHIZOPHRENIA [None]
